FAERS Safety Report 5396460-2 (Version None)
Quarter: 2007Q3

REPORT INFORMATION
  Report Type: 
  Country: None (occurrence: None)
  Receive Date: 20070725
  Receipt Date: 20070711
  Transmission Date: 20080115
  Serious: Yes (Other)
  Sender: FDA-Public Use
  Company Number: GB-BAUSCH-2007BL000120

PATIENT
  Age: 28 Year
  Sex: Female

DRUGS (3)
  1. PREDNISOLONE SODIUM PHOSPHATE [Suspect]
     Indication: ROSACEA
     Route: 048
  2. ERYTHROMYCIN [Suspect]
     Indication: ROSACEA
     Route: 048
  3. INSULIN [Concomitant]
     Indication: GESTATIONAL DIABETES

REACTIONS (4)
  - DRUG EXPOSURE DURING PREGNANCY [None]
  - GESTATIONAL DIABETES [None]
  - INTRA-UTERINE DEATH [None]
  - OLIGOHYDRAMNIOS [None]
